FAERS Safety Report 8616307-8 (Version None)
Quarter: 2012Q3

REPORT INFORMATION
  Report Type: 
  Country: None (occurrence: None)
  Receive Date: 20120823
  Receipt Date: 20120820
  Transmission Date: 20120928
  Serious: Yes (Other)
  Sender: FDA-Public Use
  Company Number: US-PFIZER INC-2012203958

PATIENT
  Age: 79 Year
  Sex: Female

DRUGS (4)
  1. VITAMIN B-12 [Concomitant]
     Dosage: UNK
  2. CENTRUM [Concomitant]
     Dosage: UNK
  3. ROBITUSSIN COUGH AND CHEST CONGESTION [Suspect]
     Indication: LOWER RESPIRATORY TRACT INFECTION
     Dosage: UNK, DAILY
     Route: 048
     Dates: start: 20110101, end: 20120801
  4. ASPIRIN [Concomitant]
     Dosage: 81 MG, DAILY

REACTIONS (9)
  - MENTAL IMPAIRMENT [None]
  - MALAISE [None]
  - DIZZINESS [None]
  - MEMORY IMPAIRMENT [None]
  - FEELING ABNORMAL [None]
  - ASTHENIA [None]
  - DEREALISATION [None]
  - MOBILITY DECREASED [None]
  - SLUGGISHNESS [None]
